FAERS Safety Report 6060214-4 (Version None)
Quarter: 2009Q1

REPORT INFORMATION
  Report Type: 
  Country: None (occurrence: None)
  Receive Date: 20090129
  Receipt Date: 20090116
  Transmission Date: 20090719
  Serious: Yes (Other)
  Sender: FDA-Public Use
  Company Number: PAR_02734_2009

PATIENT
  Age: 15 Month
  Sex: Male
  Weight: 9 kg

DRUGS (2)
  1. IBUPROFEN TABLETS [Suspect]
     Indication: RESPIRATORY TRACT INFECTION
     Dosage: (125 MG QD)
  2. BRONCHIPRET /01443101/ [Concomitant]

REACTIONS (2)
  - APNOEA [None]
  - RESPIRATORY DEPRESSION [None]
